FAERS Safety Report 8880717 (Version 3)
Quarter: 2012Q4

REPORT INFORMATION
  Report Type: 
  Country: US (occurrence: US)
  Receive Date: 20121101
  Receipt Date: 20121217
  Transmission Date: 20130627
  Serious: Yes (Other)
  Sender: FDA-Public Use
  Company Number: US-GLAXOSMITHKLINE-A0998818A

PATIENT
  Age: 74 Year
  Sex: Female

DRUGS (3)
  1. VENTOLIN HFA [Suspect]
     Indication: ASTHMA
     Dosage: 2PUFF Four times per day
     Route: 055
     Dates: start: 201105
  2. ADVAIR [Concomitant]
  3. BUDESONIDE [Concomitant]

REACTIONS (4)
  - Dyspnoea [Recovering/Resolving]
  - Drug ineffective [Unknown]
  - Wheezing [Unknown]
  - Product quality issue [Unknown]
